FAERS Safety Report 12468929 (Version 1)
Quarter: 2016Q2

REPORT INFORMATION
  Report Type: Report from Study
  Country: US (occurrence: US)
  Receive Date: 20160615
  Receipt Date: 20160615
  Transmission Date: 20160815
  Serious: Yes (Other)
  Sender: FDA-Public Use
  Company Number: US-AMGEN-USASL2016073720

PATIENT
  Age: 59 Year
  Sex: Female

DRUGS (1)
  1. ENBREL [Suspect]
     Active Substance: ETANERCEPT
     Indication: RHEUMATOID ARTHRITIS
     Dosage: 50 MG, QWK
     Route: 065
     Dates: start: 20160226

REACTIONS (12)
  - Arthralgia [Unknown]
  - Pain in extremity [Recovering/Resolving]
  - Peroneal nerve palsy [Unknown]
  - Fatigue [Unknown]
  - Rash [Recovered/Resolved]
  - Bursitis [Unknown]
  - Fall [Unknown]
  - Mobility decreased [Unknown]
  - Rash pruritic [Recovered/Resolved]
  - Musculoskeletal pain [Unknown]
  - Transient ischaemic attack [Unknown]
  - Pain [Not Recovered/Not Resolved]

NARRATIVE: CASE EVENT DATE: 2016
